FAERS Safety Report 7509027-4 (Version None)
Quarter: 2011Q2

REPORT INFORMATION
  Report Type: 
  Country: None (occurrence: None)
  Receive Date: 20110527
  Receipt Date: 20110518
  Transmission Date: 20111010
  Serious: Yes (Hospitalization, Other)
  Sender: FDA-Public Use
  Company Number: DE-TEVA-282322GER

PATIENT
  Sex: Female

DRUGS (6)
  1. AZATHIOPRINE [Suspect]
     Indication: CROHN'S DISEASE
     Dosage: 150 MICROGRAM;
     Route: 048
  2. PREDNISOLONE [Suspect]
     Indication: CROHN'S DISEASE
     Dosage: 70 MILLIGRAM; GW: 0-8
     Route: 048
  3. PREDNISOLONE [Suspect]
     Dosage: 70 MILLIGRAM; GW: 8-11
     Route: 048
  4. PENTASA [Suspect]
     Indication: CROHN'S DISEASE
     Dosage: 100 MILLIGRAM;
     Route: 048
  5. PREDNISOLONE [Suspect]
     Dosage: 50 MILLIGRAM; REDUCED TO 5MG/D
     Route: 048
  6. FOLSAEURE [Concomitant]
     Indication: PROPHYLAXIS OF NEURAL TUBE DEFECT
     Route: 048

REACTIONS (2)
  - ABORTION SPONTANEOUS [None]
  - DRUG EXPOSURE DURING PREGNANCY [None]
